FAERS Safety Report 13290607 (Version 3)
Quarter: 2017Q1

REPORT INFORMATION
  Report Type: Spontaneous
  Country: US (occurrence: US)
  Receive Date: 20170303
  Receipt Date: 20170327
  Transmission Date: 20170428
  Serious: Yes (Hospitalization, Other)
  Sender: FDA-Public Use
  Company Number: US-JUBILANT GENERICS LIMITED-1063779

PATIENT
  Age: 54 Year
  Sex: Male
  Weight: 59 kg

DRUGS (7)
  1. ALPRAZOLAM. [Concomitant]
     Active Substance: ALPRAZOLAM
     Route: 048
  2. SINGULAIR [Concomitant]
     Active Substance: MONTELUKAST SODIUM
     Route: 048
  3. ACETAMINOPHEN-HYDROCODONE [Concomitant]
  4. OMEPRAZOLE. [Concomitant]
     Active Substance: OMEPRAZOLE
     Route: 048
  5. ATENOLOL. [Concomitant]
     Active Substance: ATENOLOL
     Route: 048
  6. MULTIVITAMIN [Concomitant]
     Active Substance: VITAMINS
     Route: 048
  7. SPIRONOLACTONE. [Suspect]
     Active Substance: SPIRONOLACTONE
     Indication: HYPERTENSION
     Route: 048
     Dates: start: 20161109, end: 201701

REACTIONS (15)
  - Breast pain [Recovering/Resolving]
  - Sexual dysfunction [Recovering/Resolving]
  - Fatigue [Recovering/Resolving]
  - Nipple disorder [Not Recovered/Not Resolved]
  - Urine flow decreased [Recovering/Resolving]
  - Sinusitis [Unknown]
  - Tenderness [Not Recovered/Not Resolved]
  - Systemic inflammatory response syndrome [Recovered/Resolved]
  - Dry mouth [Recovering/Resolving]
  - Urine output decreased [Recovering/Resolving]
  - Gynaecomastia [Recovering/Resolving]
  - Alcoholic pancreatitis [Unknown]
  - Thirst [Recovering/Resolving]
  - Asthenia [Recovering/Resolving]
  - Pancreatic pseudocyst [Unknown]

NARRATIVE: CASE EVENT DATE: 201612
